FAERS Safety Report 12422317 (Version 2)
Quarter: 2016Q3

REPORT INFORMATION
  Report Type: Spontaneous
  Country: US (occurrence: US)
  Receive Date: 20160601
  Receipt Date: 20160829
  Transmission Date: 20161109
  Serious: No
  Sender: FDA-Public Use
  Company Number: US-JNJFOC-20160415954

PATIENT
  Age: 10 Year
  Sex: Female

DRUGS (2)
  1. CONCERTA [Suspect]
     Active Substance: METHYLPHENIDATE HYDROCHLORIDE
     Indication: ATTENTION DEFICIT/HYPERACTIVITY DISORDER
     Route: 048
     Dates: start: 20160328, end: 201604
  2. CONCERTA [Suspect]
     Active Substance: METHYLPHENIDATE HYDROCHLORIDE
     Indication: ATTENTION DEFICIT/HYPERACTIVITY DISORDER
     Dosage: HALF OF 18 MG ONCE A DAY
     Route: 048
     Dates: start: 201604

REACTIONS (3)
  - Wrong technique in product usage process [Unknown]
  - Poor quality sleep [Unknown]
  - Underdose [Unknown]

NARRATIVE: CASE EVENT DATE: 201604
